FAERS Safety Report 9144172 (Version 1)
Quarter: 2013Q1

REPORT INFORMATION
  Report Type: Spontaneous
  Country: US (occurrence: US)
  Receive Date: 20130306
  Receipt Date: 20130306
  Transmission Date: 20140127
  Serious: No
  Sender: FDA-Public Use
  Company Number: US-B.I. PHARMACEUTICALS,INC./RIDGEFIELD-2013-BI-05653BP

PATIENT
  Sex: Female
  Weight: 75 kg

DRUGS (2)
  1. SPIRIVA [Suspect]
     Indication: ELDERLY
     Dosage: 18 MCG
     Route: 055
     Dates: start: 2011
  2. SPIRIVA [Suspect]
     Indication: WHEEZING

REACTIONS (1)
  - Carpal tunnel syndrome [Not Recovered/Not Resolved]
